FAERS Safety Report 12259964 (Version 1)
Quarter: 2016Q2

REPORT INFORMATION
  Report Type: Spontaneous
  Country: US (occurrence: US)
  Receive Date: 20160412
  Receipt Date: 20160412
  Transmission Date: 20160815
  Serious: No
  Sender: FDA-Public Use
  Company Number: US-SA-2015SA160192

PATIENT
  Age: 15 Month

DRUGS (1)
  1. ALLEGRA ALLERGY [Suspect]
     Active Substance: FEXOFENADINE HYDROCHLORIDE
     Dosage: TOOK SOME OF THE ALLEGRA 24 HOURS TABLETS
     Route: 065

REACTIONS (1)
  - Accidental exposure to product by child [Unknown]
